FAERS Safety Report 8261193 (Version 13)
Quarter: 2018Q2

REPORT INFORMATION
  Report Type: Report from Study
  Country: BR (occurrence: BR)
  Receive Date: 20111123
  Receipt Date: 20180615
  Transmission Date: 20180711
  Serious: Yes (Hospitalization, Other)
  Sender: FDA-Public Use
  Company Number: BR-ROCHE-1013584

PATIENT
  Age: 60 Year
  Sex: Female
  Weight: 70 kg

DRUGS (46)
  1. MONTELAIR [Concomitant]
     Active Substance: MONTELUKAST SODIUM
     Indication: ASTHMA
     Dosage: 1 DF, QD
     Route: 048
  2. XOLAIR [Suspect]
     Active Substance: OMALIZUMAB
     Route: 058
  3. CLENIL-A [Suspect]
     Active Substance: BECLOMETHASONE DIPROPIONATE
     Indication: PRODUCT USED FOR UNKNOWN INDICATION
     Route: 065
  4. LORATADINE. [Concomitant]
     Active Substance: LORATADINE
     Indication: PRODUCT USED FOR UNKNOWN INDICATION
     Dosage: 1 DF, QD IN THE BEGINNING OF THE EPISODES, TO THE ITCHING AND THE THROAT AND EAR
     Route: 065
  5. LOSARTAN POTASSIUM. [Concomitant]
     Active Substance: LOSARTAN POTASSIUM
     Route: 065
  6. ALENIA (BRAZIL) [Concomitant]
     Active Substance: BUDESONIDE\FORMOTEROL FUMARATE
     Indication: ASTHMA
     Dosage: 3 DF, QD
     Route: 055
     Dates: start: 201202
  7. ALENIA (BRAZIL) [Concomitant]
     Active Substance: BUDESONIDE\FORMOTEROL FUMARATE
     Dosage: UNK, BID
     Route: 055
  8. SPIRIVA [Concomitant]
     Active Substance: TIOTROPIUM BROMIDE MONOHYDRATE
     Indication: ASTHMA
     Route: 065
  9. BROMAZEPAM [Concomitant]
     Active Substance: BROMAZEPAM
     Indication: SLEEP DISORDER
     Route: 065
  10. VERAPAMIL [Concomitant]
     Active Substance: VERAPAMIL HYDROCHLORIDE
     Route: 065
  11. DROXAINE [Concomitant]
     Active Substance: ALUMINUM HYDROXIDE\MAGNESIUM OXIDE\OXETHAZAINE
     Indication: GASTRIC POLYPS
     Route: 065
  12. BUSONID [Concomitant]
     Active Substance: BUDESONIDE
     Indication: ASTHMA
     Dosage: UNK UNK, BID
     Route: 055
  13. PARACETAMOL [Concomitant]
     Active Substance: ACETAMINOPHEN
  14. XOLAIR [Suspect]
     Active Substance: OMALIZUMAB
     Route: 058
  15. PRELONE [Concomitant]
     Active Substance: PREDNISOLONE
     Dosage: 30 MG, UNK
     Route: 065
  16. PRELONE [Concomitant]
     Active Substance: PREDNISOLONE
     Dosage: 20 MG, DAILY
     Route: 065
     Dates: start: 20111108, end: 20111110
  17. DUOVENT N [Concomitant]
     Active Substance: FENOTEROL HYDROBROMIDE\IPRATROPIUM BROMIDE
     Dosage: UNK, QID
     Route: 055
  18. LEXOTAN [Concomitant]
     Active Substance: BROMAZEPAM
     Route: 065
  19. SEEBRI [Concomitant]
     Active Substance: GLYCOPYRRONIUM
     Indication: PRODUCT USED FOR UNKNOWN INDICATION
     Route: 065
  20. FORASEQ (BRAZIL) [Concomitant]
     Active Substance: BUDESONIDE\FORMOTEROL FUMARATE
     Indication: PRODUCT USED FOR UNKNOWN INDICATION
     Route: 065
  21. DROXAINE [Concomitant]
     Active Substance: ALUMINUM HYDROXIDE\MAGNESIUM OXIDE\OXETHAZAINE
     Indication: ASTHMA
     Dosage: 4 DF, QD
     Route: 048
  22. XOLAIR [Suspect]
     Active Substance: OMALIZUMAB
     Indication: ASTHMA
     Route: 058
     Dates: start: 201011
  23. PRELONE [Concomitant]
     Active Substance: PREDNISOLONE
     Dosage: FOR 10 DAYS
     Route: 065
  24. DOMPERIDONE [Concomitant]
     Active Substance: DOMPERIDONE
     Route: 065
  25. ALENIA (BRAZIL) [Concomitant]
     Active Substance: BUDESONIDE\FORMOTEROL FUMARATE
     Dosage: 1 DF (12/400 OT)
     Route: 055
  26. DUOVENT N [Concomitant]
     Active Substance: FENOTEROL HYDROBROMIDE\IPRATROPIUM BROMIDE
     Indication: ASTHMA
     Dosage: UNK
     Route: 065
     Dates: start: 2012
  27. FRONTAL [Concomitant]
     Active Substance: ALPRAZOLAM
     Indication: ANXIETY
     Dosage: 1 DF, QD SINCE 5 YEARS AGO
     Route: 048
  28. COMBIVENT [Concomitant]
     Active Substance: ALBUTEROL SULFATE\IPRATROPIUM BROMIDE
     Dosage: 20/120 MCG
     Route: 065
  29. PRELONE [Concomitant]
     Active Substance: PREDNISOLONE
     Dosage: TAPERING DOSE
     Route: 065
  30. HYDROCHLOROTHIAZIDE. [Concomitant]
     Active Substance: HYDROCHLOROTHIAZIDE
     Route: 065
  31. MIFLONIDE [Concomitant]
     Active Substance: BUDESONIDE
     Indication: ASTHMA
     Dosage: 2 DF, QD
     Route: 065
  32. DILTIAZEM HYDROCHLORIDE. [Concomitant]
     Active Substance: DILTIAZEM HYDROCHLORIDE
     Indication: HYPERTENSION
     Dosage: 1 DF, QD
     Route: 065
  33. TYLENOL [Concomitant]
     Active Substance: ACETAMINOPHEN
     Indication: PAIN
     Dosage: UNK
     Route: 065
  34. SILIMALON [Concomitant]
     Indication: LIVER DISORDER
     Route: 065
  35. XOLAIR [Suspect]
     Active Substance: OMALIZUMAB
     Route: 058
     Dates: start: 20120511
  36. PANTOPRAZOLE [Concomitant]
     Active Substance: PANTOPRAZOLE
     Route: 065
  37. SINGULAIR [Concomitant]
     Active Substance: MONTELUKAST SODIUM
     Indication: ASTHMA
     Dosage: 1 DF, QD
     Route: 065
  38. STRIVERDI RESPIMAT [Concomitant]
     Active Substance: OLODATEROL HYDROCHLORIDE
     Indication: ASTHMA
     Dosage: UNK UNK, BID SINCE 20 YEARS AGO
     Route: 055
  39. PRELONE [Concomitant]
     Active Substance: PREDNISOLONE
     Indication: PRODUCT USED FOR UNKNOWN INDICATION
     Dosage: 2 DF, BID
     Route: 065
     Dates: start: 20110920, end: 20111025
  40. SERTRALINE HYDROCHLORIDE. [Concomitant]
     Active Substance: SERTRALINE HYDROCHLORIDE
     Indication: DEPRESSION
     Dosage: 1 DF, QD SINCE 10 YEARS AGO
     Route: 048
  41. SERTRALINE HYDROCHLORIDE. [Concomitant]
     Active Substance: SERTRALINE HYDROCHLORIDE
     Indication: ANXIETY
     Route: 065
  42. ANSITEC [Concomitant]
     Active Substance: BUSPIRONE HYDROCHLORIDE
     Indication: ANXIETY
     Dosage: 1 DF, QD SINCE 10 YEARS AGO
     Route: 048
  43. XOLAIR [Suspect]
     Active Substance: OMALIZUMAB
     Route: 058
     Dates: start: 20110829
  44. XOLAIR [Suspect]
     Active Substance: OMALIZUMAB
     Route: 058
     Dates: start: 201112
  45. SERETIDE [Concomitant]
     Active Substance: FLUTICASONE PROPIONATE\SALMETEROL XINAFOATE
     Indication: ASTHMA
     Dosage: 50/500 UG, TWICE A DAY
     Route: 065
  46. BAMIFIX [Concomitant]
     Active Substance: BAMIFYLLINE HYDROCHLORIDE
     Indication: ASTHMA
     Dosage: 2 DF, QD
     Route: 065

REACTIONS (42)
  - Total lung capacity decreased [Recovered/Resolved]
  - Asthma [Not Recovered/Not Resolved]
  - Abdominal pain upper [Not Recovered/Not Resolved]
  - Nasal septum deviation [Not Recovered/Not Resolved]
  - Dyspnoea [Not Recovered/Not Resolved]
  - Muscle spasms [Recovering/Resolving]
  - Malaise [Unknown]
  - General physical health deterioration [Not Recovered/Not Resolved]
  - Herpes zoster [Unknown]
  - Dysphonia [Not Recovered/Not Resolved]
  - Herpes virus infection [Unknown]
  - Dyspnoea exertional [Unknown]
  - Depression [Unknown]
  - Immunodeficiency [Not Recovered/Not Resolved]
  - Gait inability [Not Recovered/Not Resolved]
  - Insomnia [Unknown]
  - Asthma [Recovered/Resolved]
  - Lacrimation increased [Recovered/Resolved]
  - Respiratory distress [Not Recovered/Not Resolved]
  - Asthmatic crisis [Unknown]
  - Wheezing [Not Recovered/Not Resolved]
  - Renal disorder [Not Recovered/Not Resolved]
  - Dyspnoea exertional [Recovered/Resolved]
  - Weight increased [Unknown]
  - Lung disorder [Unknown]
  - Dacryostenosis acquired [Recovered/Resolved]
  - Diabetes mellitus [Not Recovered/Not Resolved]
  - Obstructive airways disorder [Not Recovered/Not Resolved]
  - Incorrect dose administered [Unknown]
  - Respiratory distress [Unknown]
  - Rhinitis allergic [Unknown]
  - Gallbladder disorder [Not Recovered/Not Resolved]
  - Lung infection [Not Recovered/Not Resolved]
  - Hepatitis [Not Recovered/Not Resolved]
  - Tachycardia [Not Recovered/Not Resolved]
  - Fatigue [Unknown]
  - Tremor [Unknown]
  - Bronchial obstruction [Unknown]
  - Gait disturbance [Unknown]
  - Emotional disorder [Recovered/Resolved]
  - Drug ineffective [Unknown]
  - Swelling [Unknown]

NARRATIVE: CASE EVENT DATE: 201106
